FAERS Safety Report 15361748 (Version 4)
Quarter: 2024Q3

REPORT INFORMATION
  Report Type: Report from Study
  Country: FR (occurrence: FR)
  Receive Date: 20180907
  Receipt Date: 20240731
  Transmission Date: 20241017
  Serious: Yes (Hospitalization, Other)
  Sender: PFIZER
  Company Number: FR-TAKEDA-2016MPI008552

PATIENT
  Age: 22 Year
  Sex: Male
  Weight: 85 kg

DRUGS (25)
  1. ADCETRIS [Suspect]
     Active Substance: BRENTUXIMAB VEDOTIN
     Indication: Hodgkin^s disease
     Dosage: 150 MG, CYCLIC
     Route: 042
     Dates: start: 20160519
  2. ADCETRIS [Suspect]
     Active Substance: BRENTUXIMAB VEDOTIN
     Dosage: 150 MG, CYCLIC
     Route: 042
     Dates: start: 20160712
  3. ADCETRIS [Suspect]
     Active Substance: BRENTUXIMAB VEDOTIN
     Dosage: 140 MG, CYCLIC
     Route: 042
     Dates: start: 20160809
  4. ADCETRIS [Suspect]
     Active Substance: BRENTUXIMAB VEDOTIN
     Dosage: 135 MG, CYCLIC
     Route: 042
     Dates: start: 20160831
  5. ADCETRIS [Suspect]
     Active Substance: BRENTUXIMAB VEDOTIN
     Dosage: UNK UNK, CYCLIC
     Route: 042
     Dates: start: 20160914
  6. ADCETRIS [Suspect]
     Active Substance: BRENTUXIMAB VEDOTIN
     Dosage: 135 MG, CYCLIC
     Route: 042
     Dates: start: 20161005
  7. ADCETRIS [Suspect]
     Active Substance: BRENTUXIMAB VEDOTIN
     Dosage: 140 MG, UNK
     Route: 042
     Dates: start: 20161025, end: 20161025
  8. ADCETRIS [Suspect]
     Active Substance: BRENTUXIMAB VEDOTIN
     Dosage: 145 MG, CYCLIC
     Route: 042
     Dates: start: 20170307, end: 20170420
  9. DOXORUBICIN HYDROCHLORIDE [Suspect]
     Active Substance: DOXORUBICIN HYDROCHLORIDE
     Indication: Hodgkin^s disease
     Dosage: 30 MG
     Route: 042
     Dates: start: 20160712, end: 20160823
  10. DOXORUBICIN HYDROCHLORIDE [Suspect]
     Active Substance: DOXORUBICIN HYDROCHLORIDE
     Dosage: 28 MILLIGRAM
     Route: 042
     Dates: start: 20160823
  11. GEMCITABINE HYDROCHLORIDE [Suspect]
     Active Substance: GEMCITABINE HYDROCHLORIDE
     Indication: Hodgkin^s disease
     Dosage: UNK UNK, CYCLIC
     Route: 042
     Dates: start: 20160625
  12. GEMCITABINE HYDROCHLORIDE [Suspect]
     Active Substance: GEMCITABINE HYDROCHLORIDE
     Dosage: 1500 MG
     Route: 042
     Dates: start: 20160712, end: 20160823
  13. GEMCITABINE HYDROCHLORIDE [Suspect]
     Active Substance: GEMCITABINE HYDROCHLORIDE
     Dosage: 1901 MILLIGRAM
     Route: 042
     Dates: start: 20160823
  14. VINORELBINE [Suspect]
     Active Substance: VINORELBINE TARTRATE
     Indication: Hodgkin^s disease
     Dosage: UNK, CYCLIC
     Route: 042
     Dates: start: 20160625
  15. VINORELBINE [Suspect]
     Active Substance: VINORELBINE TARTRATE
     Dosage: 40 MG
     Route: 042
     Dates: start: 20160712, end: 20160823
  16. VINORELBINE [Suspect]
     Active Substance: VINORELBINE TARTRATE
     Dosage: 38 MILLIGRAM
     Route: 042
     Dates: start: 20160823
  17. BENDAMUSTINE [Concomitant]
     Active Substance: BENDAMUSTINE
     Dosage: UNK
     Dates: start: 20161102, end: 20170515
  18. OXALIPLATIN [Concomitant]
     Active Substance: OXALIPLATIN
     Indication: Hodgkin^s disease
     Dosage: UNK, CYCLIC
     Route: 050
     Dates: start: 20160603, end: 20160603
  19. DEXAMETHASONE [Concomitant]
     Active Substance: DEXAMETHASONE
     Indication: Hodgkin^s disease
     Dosage: UNK UNK, CYCLIC
     Route: 048
     Dates: start: 20160603
  20. CYTARABINE [Concomitant]
     Active Substance: CYTARABINE
     Indication: Hodgkin^s disease
     Dosage: UNK UNK, CYCLIC
     Route: 050
     Dates: start: 20160604, end: 20160606
  21. NIVOLUMAB [Concomitant]
     Active Substance: NIVOLUMAB
     Dosage: UNK
     Route: 065
     Dates: start: 20160914
  22. NIVOLUMAB [Concomitant]
     Active Substance: NIVOLUMAB
     Dosage: 200 MILLIGRAM
     Route: 042
     Dates: start: 20160919
  23. NIVOLUMAB [Concomitant]
     Active Substance: NIVOLUMAB
     Dosage: NINE CYCLES
     Dates: start: 20161102
  24. IFOSFAMIDE [Concomitant]
     Active Substance: IFOSFAMIDE
     Dosage: UNK
     Route: 065
     Dates: start: 20160625
  25. MOZOBIL [Concomitant]
     Active Substance: PLERIXAFOR
     Dosage: UNK
     Dates: start: 20160616

REACTIONS (26)
  - Dyspnoea [Unknown]
  - Oral fungal infection [Unknown]
  - Anaemia [Recovered/Resolved]
  - Pain [Recovered/Resolved]
  - Weight decreased [Unknown]
  - Sepsis [Recovered/Resolved]
  - Pyrexia [Recovered/Resolved]
  - Weight increased [Unknown]
  - Constipation [Unknown]
  - Thrombocytopenia [Unknown]
  - Vomiting [Recovered/Resolved]
  - Hypoalbuminaemia [Recovered/Resolved]
  - Neuropathy peripheral [Not Recovered/Not Resolved]
  - Hypercalcaemia [Recovered/Resolved]
  - Neuralgia [Recovered/Resolved]
  - Nausea [Recovered/Resolved]
  - Musculoskeletal chest pain [Recovered/Resolved]
  - Back pain [Unknown]
  - Full blood count abnormal [Unknown]
  - Decreased appetite [Recovered/Resolved]
  - Fungal infection [Unknown]
  - Hodgkin^s disease [Not Recovered/Not Resolved]
  - Therapeutic product effect incomplete [Unknown]
  - Overdose [Recovered/Resolved]
  - Off label use [Unknown]
  - Adverse event [Unknown]

NARRATIVE: CASE EVENT DATE: 20160101
